FAERS Safety Report 5238599-8 (Version None)
Quarter: 2007Q1

REPORT INFORMATION
  Report Type: 
  Country: None (occurrence: None)
  Receive Date: 20070215
  Receipt Date: 20070207
  Transmission Date: 20070707
  Serious: Yes (Hospitalization)
  Sender: FDA-Public Use
  Company Number: JP-SANOFI-SYNTHELABO-F01200700171

PATIENT
  Sex: Male
  Weight: 73 kg

DRUGS (10)
  1. TERNELIN [Concomitant]
     Dosage: 1 MG
     Route: 048
     Dates: start: 20050603
  2. TRIAZOLAM [Concomitant]
     Dosage: 0.25 MG
     Route: 048
     Dates: start: 20050603
  3. MUCOSTA [Concomitant]
     Dosage: 100 MG
     Route: 048
     Dates: start: 20050603
  4. MOBIC [Concomitant]
     Dosage: 5 MG
     Route: 048
     Dates: start: 20050603
  5. ALDACTONE [Concomitant]
     Dosage: 50 MG
     Route: 048
     Dates: start: 20061211
  6. LASIX [Concomitant]
     Dosage: 20 MG
     Route: 048
     Dates: start: 20041018
  7. GASTER [Concomitant]
     Dosage: 20 MG
     Route: 048
     Dates: start: 20050404
  8. MICARDIS [Concomitant]
     Indication: HYPERTENSION
     Dosage: 20 MG
     Route: 048
     Dates: start: 20061211
  9. AMLODIPINE BESYLATE [Concomitant]
     Indication: HYPERTENSION
     Dosage: 5 MG
     Route: 048
     Dates: start: 20040726
  10. CLOPIDOGREL [Suspect]
     Indication: CEREBROVASCULAR DISORDER
     Dosage: 75 MG
     Route: 048
     Dates: start: 20070116, end: 20070129

REACTIONS (1)
  - BLOOD UREA INCREASED [None]
